FAERS Safety Report 18293019 (Version 6)
Quarter: 2021Q2

REPORT INFORMATION
  Report Type: Spontaneous
  Country: US (occurrence: US)
  Receive Date: 20200921
  Receipt Date: 20210625
  Transmission Date: 20210717
  Serious: Yes (Other)
  Sender: FDA-Public Use
  Company Number: US-CATALYST PHARMACEUTICALS, INC-2020CAT00438

PATIENT
  Age: 63 Year
  Sex: Female
  Weight: 58.96 kg

DRUGS (39)
  1. FIRDAPSE [Suspect]
     Active Substance: AMIFAMPRIDINE PHOSPHATE
     Dosage: 15 MG, 3X/DAY
     Dates: start: 20200926, end: 20200926
  2. LEVOTHYROXINE. [Concomitant]
     Active Substance: LEVOTHYROXINE
     Dosage: 150 ?G, 1X/DAY IN THE MORNING
     Route: 048
  3. CLARITIN [Concomitant]
     Active Substance: LORATADINE
     Dosage: 10 MG, 1X/DAY IN THE MORNING
     Route: 048
  4. COENZYME Q?10 [Concomitant]
  5. CURCUMIN [Concomitant]
     Active Substance: CURCUMIN
  6. L?GLUTAMINE [Concomitant]
  7. VITAMIN D3 [Concomitant]
     Active Substance: CHOLECALCIFEROL
  8. FIRDAPSE [Suspect]
     Active Substance: AMIFAMPRIDINE PHOSPHATE
     Indication: MYASTHENIC SYNDROME
     Dosage: 5 MG, 3X/DAY
     Route: 048
     Dates: start: 202008, end: 202008
  9. DICLOFENAC [Concomitant]
     Active Substance: DICLOFENAC
     Dosage: 100 MG, 2X/DAY
     Route: 048
  10. IRON [Concomitant]
     Active Substance: IRON
  11. LIONS MANE [Concomitant]
  12. VALIUM [Suspect]
     Active Substance: DIAZEPAM
     Dosage: UNK
     Dates: start: 20201012
  13. BIO COMPLETE 3 [Concomitant]
  14. ALPHA LIPOIC ACID [Concomitant]
     Active Substance: .ALPHA.-LIPOIC ACID
  15. B?COMPLEX/ B12 [Concomitant]
  16. GINKO BILOBA [Concomitant]
     Active Substance: GINKGO
  17. LEMON BALM [Concomitant]
     Active Substance: HERBALS\MELISSA OFFICINALIS
  18. N?ACETYL CYSTEINE [Concomitant]
     Active Substance: ACETYLCYSTEINE
  19. STINGING NETTLE [Concomitant]
     Active Substance: HERBALS
  20. FIRDAPSE [Suspect]
     Active Substance: AMIFAMPRIDINE PHOSPHATE
     Dosage: 15 MG, 2X/DAY
     Dates: start: 20200927, end: 202010
  21. FIRDAPSE [Suspect]
     Active Substance: AMIFAMPRIDINE PHOSPHATE
     Dosage: SHE SETS THE DOSAGE HERSELF
     Route: 048
  22. LIOTHYRONINE [Concomitant]
     Active Substance: LIOTHYRONINE
     Dosage: 10 MG, 1X/DAY IN THE MORNING
     Route: 048
  23. CALCIUM [Concomitant]
     Active Substance: CALCIUM
  24. MANGANESE [Concomitant]
     Active Substance: MANGANESE CHLORIDE
  25. VITAMIN C [Concomitant]
     Active Substance: ASCORBIC ACID
  26. FIRDAPSE [Suspect]
     Active Substance: AMIFAMPRIDINE PHOSPHATE
     Dosage: 15 MG, ONCE OR TWICE A DAY
     Dates: start: 202010, end: 20201015
  27. FIRDAPSE [Suspect]
     Active Substance: AMIFAMPRIDINE PHOSPHATE
     Dosage: 15 MG, ONCE OR TWICE A DAY
  28. IVIG [Suspect]
     Active Substance: HUMAN IMMUNOGLOBULIN G
     Dosage: 30 G, 1X/WEEK
     Route: 042
     Dates: start: 2020
  29. GRAPE SEED EXTRACT [Concomitant]
     Active Substance: DIETARY SUPPLEMENT\GRAPE SEED EXTRACT
  30. MONOLAURIN [Concomitant]
  31. SAM?E [Concomitant]
     Active Substance: ADEMETIONINE
  32. TOTAL RESTORE [Concomitant]
  33. FIRDAPSE [Suspect]
     Active Substance: AMIFAMPRIDINE PHOSPHATE
     Dosage: 10 MG, 3X/DAY
     Route: 048
     Dates: start: 20200816, end: 20201002
  34. FIRDAPSE [Suspect]
     Active Substance: AMIFAMPRIDINE PHOSPHATE
     Dosage: 15 MG, 2X/DAY
     Route: 048
  35. GLUCOSAMINE [Concomitant]
     Active Substance: GLUCOSAMINE
  36. MEDROL [Concomitant]
     Active Substance: METHYLPREDNISOLONE
     Dosage: 8 MG, 1X/DAY IN THE MORNING
     Route: 048
  37. MULTI?VITAMIN [Concomitant]
     Active Substance: .ALPHA.-TOCOPHEROL ACETATE, DL-\ASCORBIC ACID\CYANOCOBALAMIN\FLUORIDE ION\FOLIC ACID\NIACIN\PYRIDOXINE\RIBOFLAVIN\THIAMINE\VITAMIN A\VITAMIN D
  38. MSM [Concomitant]
     Active Substance: DIMETHYL SULFONE
  39. OMEGA 3 VITAMINS [Concomitant]

REACTIONS (39)
  - Supraventricular tachycardia [Recovered/Resolved]
  - Anxiety [Recovering/Resolving]
  - Head discomfort [Not Recovered/Not Resolved]
  - Dizziness [Recovering/Resolving]
  - Nausea [Recovered/Resolved]
  - Supraventricular extrasystoles [Unknown]
  - Ventricular extrasystoles [Unknown]
  - Cough [Recovering/Resolving]
  - Intentional product misuse [Not Recovered/Not Resolved]
  - Paraesthesia [Recovered/Resolved]
  - Headache [Not Recovered/Not Resolved]
  - Muscular weakness [Recovered/Resolved]
  - Psychomotor hyperactivity [Recovering/Resolving]
  - Photopsia [Recovered/Resolved]
  - Weight decreased [Unknown]
  - Illness [Unknown]
  - Central nervous system lesion [Not Recovered/Not Resolved]
  - Paraesthesia oral [Recovered/Resolved]
  - Chest discomfort [Recovered/Resolved]
  - Abdominal pain upper [Unknown]
  - Discomfort [Recovering/Resolving]
  - Nervousness [Recovering/Resolving]
  - Feeling abnormal [Recovered/Resolved]
  - Lethargy [Not Recovered/Not Resolved]
  - Insomnia [Recovered/Resolved]
  - Palpitations [Recovered/Resolved]
  - Inhibitory drug interaction [Not Recovered/Not Resolved]
  - Neuropathy peripheral [Not Recovered/Not Resolved]
  - Atrial fibrillation [Unknown]
  - Inflammation [Not Recovered/Not Resolved]
  - Asthenia [Not Recovered/Not Resolved]
  - Oropharyngeal pain [Recovering/Resolving]
  - Pain in jaw [Recovered/Resolved]
  - Decreased appetite [Unknown]
  - Therapeutic product effect incomplete [Not Recovered/Not Resolved]
  - Tachycardia [Recovering/Resolving]
  - Joint injury [Not Recovered/Not Resolved]
  - Gait disturbance [Not Recovered/Not Resolved]
  - Hypertension [Recovered/Resolved]

NARRATIVE: CASE EVENT DATE: 2020
